FAERS Safety Report 8935261 (Version 1)
Quarter: 2012Q4

REPORT INFORMATION
  Report Type: Report from Study
  Country: JP (occurrence: JP)
  Receive Date: 20121129
  Receipt Date: 20121129
  Transmission Date: 20130627
  Serious: Yes (Hospitalization)
  Sender: FDA-Public Use
  Company Number: JP-MERCK-2012SP032666

PATIENT
  Age: 64 Year
  Sex: Female
  Weight: 47 kg

DRUGS (7)
  1. PEGINTRON [Suspect]
     Indication: CHRONIC HEPATITIS C
     Dosage: 1.5 ?g/kg, QW
     Route: 051
     Dates: start: 20120410, end: 20120501
  2. RIBAVIRIN [Suspect]
     Indication: CHRONIC HEPATITIS C
     Dosage: 600 mg, QD
     Route: 048
     Dates: start: 20120410, end: 20120430
  3. RIBAVIRIN [Suspect]
     Dosage: 200 mg, QD
     Route: 048
     Dates: start: 20120501, end: 20120506
  4. TELAVIC [Suspect]
     Indication: CHRONIC HEPATITIS C
     Dosage: 2250 mg, QD
     Route: 048
     Dates: start: 20120410, end: 20120417
  5. TELAVIC [Suspect]
     Dosage: 1500 mg, QD
     Route: 048
     Dates: start: 20120418, end: 20120506
  6. DEPAS [Concomitant]
     Indication: INSOMNIA
     Dosage: 1 mg, QD
     Route: 048
  7. SIGMART [Concomitant]
     Indication: ANGINA PECTORIS
     Dosage: 15 mg, qd
     Route: 048

REACTIONS (2)
  - Vomiting [Recovered/Resolved]
  - Nausea [Recovered/Resolved]
